FAERS Safety Report 6962318-8 (Version None)
Quarter: 2010Q3

REPORT INFORMATION
  Report Type: 
  Country: None (occurrence: None)
  Receive Date: 20100902
  Receipt Date: 20100823
  Transmission Date: 20110219
  Serious: Yes (Other)
  Sender: FDA-Public Use
  Company Number: CH-ELI_LILLY_AND_COMPANY-CH201007003762

PATIENT
  Age: 87 Year
  Sex: Female

DRUGS (5)
  1. CYMBALTA [Suspect]
     Indication: DEPRESSION
     Dosage: 30 MG, ONCE
     Route: 048
     Dates: start: 20090625, end: 20090625
  2. LEXOTANIL [Concomitant]
     Indication: ANXIETY
     Dosage: 1.5 MG, 2/D
     Route: 048
  3. TEGRETOL [Concomitant]
     Indication: GRAND MAL CONVULSION
     Dosage: UNK, 2/D
     Route: 048
     Dates: start: 19860101
  4. TORASEM [Concomitant]
     Indication: HYPERTENSION
     Dosage: 5 MG, DAILY (1/D)
     Route: 048
  5. FELODIPINE [Concomitant]
     Dosage: 5 MG, DAILY (1/D)
     Route: 048

REACTIONS (1)
  - LOSS OF CONSCIOUSNESS [None]
